FAERS Safety Report 19761918 (Version 1)
Quarter: 2021Q3

REPORT INFORMATION
  Report Type: Spontaneous
  Country: US (occurrence: US)
  Receive Date: 20210829
  Receipt Date: 20210829
  Transmission Date: 20211014
  Serious: No
  Sender: FDA-Public Use
  Company Number: None

PATIENT
  Age: 23 Year
  Sex: Female
  Weight: 142.65 kg

DRUGS (11)
  1. BUDESONIDE INHALATION SUSPENSION [Suspect]
     Active Substance: BUDESONIDE
     Indication: BACTERIAL INFECTION
     Dosage: ?          QUANTITY:30 30 AMPULES;?
     Route: 055
     Dates: start: 20210815, end: 20210829
  2. ADVAIR HFA [Concomitant]
     Active Substance: FLUTICASONE PROPIONATE\SALMETEROL XINAFOATE
  3. FLONASE [Concomitant]
     Active Substance: FLUTICASONE PROPIONATE
  4. SENSIMIST [Concomitant]
  5. CLARITIN [Concomitant]
     Active Substance: LORATADINE
  6. ALLERGY SHOTS [Concomitant]
     Active Substance: UNSPECIFIED INGREDIENT
  7. XEMBIFY [Concomitant]
     Active Substance: HUMAN IMMUNOGLOBULIN G
  8. BUDESONIDE INHALATION SUSPENSION [Suspect]
     Active Substance: BUDESONIDE
     Indication: ASTHMA
     Dosage: ?          QUANTITY:30 30 AMPULES;?
     Route: 055
     Dates: start: 20210815, end: 20210829
  9. SUBQ IGG [Concomitant]
     Active Substance: HUMAN IMMUNOGLOBULIN G
  10. NEBULIZER [Concomitant]
     Active Substance: DEVICE
  11. BENADRYL [Concomitant]
     Active Substance: DIPHENHYDRAMINE HYDROCHLORIDE

REACTIONS (7)
  - Product quality issue [None]
  - Liquid product physical issue [None]
  - Respiratory tract infection viral [None]
  - Vocal cord dysfunction [None]
  - Condition aggravated [None]
  - Dysgeusia [None]
  - Sinusitis [None]

NARRATIVE: CASE EVENT DATE: 20210829
